FAERS Safety Report 24096689 (Version 5)
Quarter: 2024Q3

REPORT INFORMATION
  Report Type: Spontaneous
  Country: US (occurrence: US)
  Receive Date: 20240716
  Receipt Date: 20240913
  Transmission Date: 20241016
  Serious: No
  Sender: PFIZER
  Company Number: US-PFIZER INC-202400211238

PATIENT
  Age: 18 Year
  Sex: Female

DRUGS (1)
  1. GENOTROPIN [Suspect]
     Active Substance: SOMATROPIN
     Dosage: 2.2 MG, DAILY

REACTIONS (5)
  - Drug dose omission by device [Unknown]
  - Product storage error [Unknown]
  - Device physical property issue [Unknown]
  - Device information output issue [Unknown]
  - Device malfunction [Unknown]
